FAERS Safety Report 5448639-9 (Version None)
Quarter: 2007Q3

REPORT INFORMATION
  Report Type: 
  Country: None (occurrence: None)
  Receive Date: 20070906
  Receipt Date: 20070906
  Transmission Date: 20080115
  Serious: Yes (Hospitalization)
  Sender: FDA-Public Use
  Company Number: None

PATIENT
  Age: 54 Year
  Sex: Male

DRUGS (4)
  1. DICLOFENAC SODIUM [Suspect]
     Indication: BACK PAIN
     Dosage: 75MG BID PO
     Route: 048
     Dates: start: 20070725, end: 20070804
  2. DICLOFENAC SODIUM [Suspect]
     Indication: PAIN IN EXTREMITY
     Dosage: 75MG BID PO
     Route: 048
     Dates: start: 20070725, end: 20070804
  3. NAPROXEN [Suspect]
     Indication: BACK PAIN
     Dosage: 75MG PO
     Route: 048
     Dates: start: 20070501, end: 20070804
  4. NAPROXEN [Suspect]
     Indication: PAIN IN EXTREMITY
     Dosage: 75MG PO
     Route: 048
     Dates: start: 20070501, end: 20070804

REACTIONS (5)
  - DIZZINESS [None]
  - FLATULENCE [None]
  - GASTROINTESTINAL HAEMORRHAGE [None]
  - RECTAL HAEMORRHAGE [None]
  - STOMACH DISCOMFORT [None]
